FAERS Safety Report 6167915-8 (Version None)
Quarter: 2009Q2

REPORT INFORMATION
  Report Type: 
  Country: None (occurrence: None)
  Receive Date: 20090427
  Receipt Date: 20090205
  Transmission Date: 20091009
  Serious: No
  Sender: FDA-Public Use
  Company Number: US-BAYER-200910498BCC

PATIENT
  Age: 84 Year
  Sex: Female
  Weight: 67 kg

DRUGS (8)
  1. ALEVE [Suspect]
     Indication: ARTHRALGIA
     Dosage: BOTTLE COUNT 40
     Dates: start: 20080801, end: 20090101
  2. ALEVE [Suspect]
     Dosage: BOTTLE COUNT UNKNOWN
     Dates: start: 20080801, end: 20090101
  3. OMEPRAZOLE [Concomitant]
  4. VESICAR [Concomitant]
  5. HYDROCHLOROTHIAZIDE [Concomitant]
  6. VITAMIN B-12 [Concomitant]
  7. ASPIRIN [Concomitant]
     Dosage: HALF OF AN 81MG
  8. OSCAL [Concomitant]

REACTIONS (1)
  - BLOOD PRESSURE SYSTOLIC INCREASED [None]
